FAERS Safety Report 7654306-3 (Version None)
Quarter: 2011Q3

REPORT INFORMATION
  Report Type: 
  Country: None (occurrence: None)
  Receive Date: 20110803
  Receipt Date: 20110728
  Transmission Date: 20111222
  Serious: Yes (Hospitalization)
  Sender: FDA-Public Use
  Company Number: PHHY2011US69211

PATIENT
  Age: 53 Year
  Sex: Female

DRUGS (1)
  1. TOBI [Suspect]
     Dosage: 300 MG TWICE A DAY FOR A CYCLE OF 28 DAYS ON AND 28 DAYS OFF
     Dates: start: 20100218

REACTIONS (1)
  - UPPER RESPIRATORY TRACT INFECTION [None]
